FAERS Safety Report 20424339 (Version 1)
Quarter: 2022Q1

REPORT INFORMATION
  Report Type: Report from Study
  Country: US (occurrence: US)
  Receive Date: 20220203
  Receipt Date: 20220203
  Transmission Date: 20220423
  Serious: Yes (Other)
  Sender: FDA-Public Use
  Company Number: US-EXELIXIS-CABO-21043885

PATIENT
  Sex: Male

DRUGS (2)
  1. CABOMETYX [Suspect]
     Active Substance: CABOZANTINIB S-MALATE
     Indication: Renal cell carcinoma
     Dosage: 40 MG, QD
     Dates: start: 20210805, end: 20210909
  2. CABOMETYX [Suspect]
     Active Substance: CABOZANTINIB S-MALATE
     Dosage: 20 MG, QD
     Dates: start: 20210916

REACTIONS (11)
  - Pulmonary embolism [Unknown]
  - Sleep disorder [Unknown]
  - Glossodynia [Recovering/Resolving]
  - Bone pain [Unknown]
  - Pain [Recovering/Resolving]
  - Pruritus [Unknown]
  - Oral pain [Recovering/Resolving]
  - Weight decreased [Unknown]
  - Dysphonia [Recovering/Resolving]
  - Taste disorder [Unknown]
  - Decreased appetite [Recovering/Resolving]
